FAERS Safety Report 24224092 (Version 2)
Quarter: 2024Q3

REPORT INFORMATION
  Report Type: Spontaneous
  Country: US (occurrence: US)
  Receive Date: 20240819
  Receipt Date: 20240826
  Transmission Date: 20241017
  Serious: Yes (Hospitalization, Other)
  Sender: SANDOZ
  Company Number: US-SANDOZ-SDZ2024US072548

PATIENT
  Age: 57 Year
  Sex: Female
  Weight: 69.2 kg

DRUGS (14)
  1. FLUOROURACIL [Suspect]
     Active Substance: FLUOROURACIL
     Dosage: 1500 MG/KG, Q2W
     Route: 042
     Dates: start: 20240718, end: 20240806
  2. FLUOROURACIL [Suspect]
     Active Substance: FLUOROURACIL
     Dosage: 1900 MG/M2, Q2W
     Route: 042
     Dates: start: 20240620, end: 20240717
  3. FLUOROURACIL [Suspect]
     Active Substance: FLUOROURACIL
     Indication: Colorectal cancer metastatic
     Dosage: 2400 MG/KG, Q2W
     Route: 042
     Dates: start: 20240523, end: 20240619
  4. FLUOROURACIL [Suspect]
     Active Substance: FLUOROURACIL
     Dosage: 260 MG/KG, Q2W
     Route: 042
     Dates: start: 20240718, end: 20240806
  5. FLUOROURACIL [Suspect]
     Active Substance: FLUOROURACIL
     Dosage: 320 MG/M2, Q2W
     Route: 042
     Dates: start: 20240620, end: 20240717
  6. FLUOROURACIL [Suspect]
     Active Substance: FLUOROURACIL
     Dosage: 400 MG/KG, Q2W
     Route: 042
     Dates: start: 20240523, end: 20240619
  7. HERCEPTIN [Suspect]
     Active Substance: TRASTUZUMAB
     Dosage: 6 MG/KG, Q3W
     Route: 042
     Dates: start: 20240613, end: 20240806
  8. HERCEPTIN [Suspect]
     Active Substance: TRASTUZUMAB
     Indication: Colorectal cancer metastatic
     Dosage: 8 MG/KG, Q2W
     Route: 042
     Dates: start: 20240523, end: 20240612
  9. LEVOLEUCOVORIN [Suspect]
     Active Substance: LEVOLEUCOVORIN
     Indication: Colorectal cancer metastatic
     Dosage: 200 MG/M2, Q2W
     Route: 042
     Dates: start: 20240523, end: 20240806
  10. LOPERAMIDE [Suspect]
     Active Substance: LOPERAMIDE
     Indication: Prophylaxis against diarrhoea
     Dosage: 2 MG, AS NEEDED
     Route: 048
     Dates: start: 20240523, end: 20240806
  11. OXALIPLATIN [Suspect]
     Active Substance: OXALIPLATIN
     Dosage: 50 MG/M2, Q2W
     Route: 042
     Dates: start: 20240718, end: 20240806
  12. OXALIPLATIN [Suspect]
     Active Substance: OXALIPLATIN
     Dosage: 65 MG/M2, Q2W
     Route: 042
     Dates: start: 20240620, end: 20240717
  13. OXALIPLATIN [Suspect]
     Active Substance: OXALIPLATIN
     Indication: Colorectal cancer metastatic
     Dosage: 85 MG/M2, Q2W
     Route: 042
     Dates: start: 20240523, end: 20240619
  14. TUCATINIB [Suspect]
     Active Substance: TUCATINIB
     Indication: Colorectal cancer metastatic
     Dosage: 300 MG, 2X/DAY, ORAL
     Route: 048
     Dates: start: 20240523, end: 20240806

REACTIONS (1)
  - Intestinal obstruction [Not Recovered/Not Resolved]

NARRATIVE: CASE EVENT DATE: 20240806
